FAERS Safety Report 7235680-9 (Version None)
Quarter: 2011Q1

REPORT INFORMATION
  Report Type: 
  Country: None (occurrence: None)
  Receive Date: 20110120
  Receipt Date: 20110107
  Transmission Date: 20110831
  Serious: Yes (Other)
  Sender: FDA-Public Use
  Company Number: US-ELI_LILLY_AND_COMPANY-US201101002512

PATIENT
  Age: 70 Year
  Sex: Male

DRUGS (3)
  1. EFFIENT [Suspect]
     Dosage: 10 MG, UNK
     Dates: start: 20110105
  2. EFFIENT [Suspect]
     Indication: STENT PLACEMENT
     Dosage: 1 D/F, UNK
     Dates: start: 20110105
  3. ANGIOMAX [Concomitant]

REACTIONS (1)
  - THROMBOSIS IN DEVICE [None]
